FAERS Safety Report 5656515-1 (Version None)
Quarter: 2008Q1

REPORT INFORMATION
  Report Type: 
  Country: None (occurrence: None)
  Receive Date: 20080309
  Receipt Date: 20080125
  Transmission Date: 20080703
  Serious: No
  Sender: FDA-Public Use
  Company Number: US-BAYER-200810426BCC

PATIENT
  Age: 18 Year
  Sex: Female
  Weight: 77 kg

DRUGS (4)
  1. ALEVE [Suspect]
     Indication: DRUG USE FOR UNKNOWN INDICATION
     Dosage: UNIT DOSE: 220 MG
     Route: 048
     Dates: start: 20080124
  2. LAMICTAL [Concomitant]
  3. SEROQUEL [Concomitant]
  4. ZOLOFT [Concomitant]

REACTIONS (1)
  - DYSGEUSIA [None]
